FAERS Safety Report 6895440-5 (Version None)
Quarter: 2010Q3

REPORT INFORMATION
  Report Type: 
  Country: None (occurrence: None)
  Receive Date: 20100802
  Receipt Date: 20100716
  Transmission Date: 20110219
  Serious: Yes (Other)
  Sender: FDA-Public Use
  Company Number: AU-BAYER-201032833GPV

PATIENT
  Age: 53 Year
  Sex: Female
  Weight: 48 kg

DRUGS (3)
  1. BETAFERON [Suspect]
     Indication: MULTIPLE SCLEROSIS
     Route: 058
     Dates: start: 20090901, end: 20100310
  2. BETAFERON [Suspect]
     Route: 058
     Dates: start: 20100314, end: 20100314
  3. BETAFERON [Suspect]
     Route: 058
     Dates: start: 20100518, end: 20100706

REACTIONS (11)
  - BACK PAIN [None]
  - FATIGUE [None]
  - FEELING COLD [None]
  - HEADACHE [None]
  - MALAISE [None]
  - NECK PAIN [None]
  - OROPHARYNGEAL DISCOMFORT [None]
  - RASH [None]
  - SKIN WARM [None]
  - TREMOR [None]
  - VOMITING [None]
